FAERS Safety Report 4536503-9 (Version None)
Quarter: 2004Q4

REPORT INFORMATION
  Report Type: 
  Country: None (occurrence: None)
  Receive Date: 20041223
  Receipt Date: 20041202
  Transmission Date: 20050328
  Serious: Yes (Hospitalization)
  Sender: FDA-Public Use
  Company Number: CA-AMGEN-US101138

PATIENT
  Sex: Male
  Weight: 66 kg

DRUGS (8)
  1. ARANESP [Suspect]
     Indication: RENAL FAILURE CHRONIC
     Route: 058
     Dates: start: 20040728, end: 20041129
  2. OSCAL [Concomitant]
     Dates: start: 20040827
  3. ONE-ALPHA [Concomitant]
     Dates: start: 20040827
  4. PRAVACHOL [Concomitant]
     Dates: start: 20040827
  5. LASIX [Concomitant]
     Dates: start: 20041012
  6. ALTACE [Concomitant]
     Dates: start: 20041108
  7. QUININE [Concomitant]
     Dates: start: 20041012
  8. COUMADIN [Concomitant]
     Dates: start: 20040827

REACTIONS (5)
  - HAEMOGLOBIN DECREASED [None]
  - HYPERPARATHYROIDISM [None]
  - RETICULOCYTE COUNT DECREASED [None]
  - SERUM FERRITIN INCREASED [None]
  - TREATMENT NONCOMPLIANCE [None]
